FAERS Safety Report 14009496 (Version 2)
Quarter: 2017Q3

REPORT INFORMATION
  Report Type: Spontaneous
  Country: US (occurrence: US)
  Receive Date: 20170925
  Receipt Date: 20170925
  Transmission Date: 20171128
  Serious: Yes (Other)
  Sender: FDA-Public Use
  Company Number: US-CELGENEUS-USA-20170905741

PATIENT
  Sex: Female
  Weight: 58.57 kg

DRUGS (1)
  1. POMALYST [Suspect]
     Active Substance: POMALIDOMIDE
     Indication: PLASMA CELL MYELOMA
     Dosage: 4 MILLIGRAM
     Route: 048
     Dates: start: 20170617

REACTIONS (4)
  - Memory impairment [Unknown]
  - Hypoacusis [Unknown]
  - Disorientation [Unknown]
  - Confusional state [Unknown]
